FAERS Safety Report 4928720-0 (Version None)
Quarter: 2006Q1

REPORT INFORMATION
  Report Type: 
  Country: None (occurrence: None)
  Receive Date: 20060301
  Receipt Date: 20060223
  Transmission Date: 20060701
  Serious: Yes (Death, Hospitalization)
  Sender: FDA-Public Use
  Company Number: JP-JNJFOC-20051106606

PATIENT
  Sex: Female
  Weight: 60 kg

DRUGS (31)
  1. REMICADE [Suspect]
     Route: 042
  2. REMICADE [Suspect]
     Route: 042
  3. REMICADE [Suspect]
     Route: 042
  4. REMICADE [Suspect]
     Route: 042
  5. REMICADE [Suspect]
     Route: 042
  6. REMICADE [Suspect]
     Route: 042
  7. REMICADE [Suspect]
     Route: 042
  8. REMICADE [Suspect]
     Route: 042
  9. REMICADE [Suspect]
     Route: 042
  10. REMICADE [Suspect]
     Route: 042
  11. REMICADE [Suspect]
     Route: 042
  12. REMICADE [Suspect]
     Route: 042
  13. REMICADE [Suspect]
     Route: 042
  14. REMICADE [Suspect]
     Indication: RHEUMATOID ARTHRITIS
     Route: 042
  15. RHEUMATREX [Suspect]
     Route: 048
  16. RHEUMATREX [Suspect]
     Route: 048
  17. RHEUMATREX [Suspect]
     Route: 048
  18. RHEUMATREX [Suspect]
     Route: 048
  19. RHEUMATREX [Suspect]
     Route: 048
  20. RHEUMATREX [Suspect]
     Route: 048
  21. RHEUMATREX [Suspect]
     Indication: RHEUMATOID ARTHRITIS
     Route: 048
  22. PREDNISOLONE [Suspect]
     Indication: RHEUMATOID ARTHRITIS
     Dosage: 6MG-80MG
     Route: 048
  23. LOXONIN [Concomitant]
     Indication: ARTHRALGIA
     Route: 048
  24. LOXONIN [Concomitant]
     Indication: RHEUMATOID ARTHRITIS
     Route: 048
  25. FOLIAMIN [Concomitant]
     Indication: PROPHYLAXIS
     Route: 048
  26. SELBEX [Concomitant]
     Indication: GASTROINTESTINAL DISORDER
     Route: 048
  27. DIDRONEL [Concomitant]
     Route: 048
  28. MOHRUS TAPE [Concomitant]
  29. HALCION [Concomitant]
     Route: 048
  30. PL [Concomitant]
     Indication: HEADACHE
     Route: 048
  31. EVISTA [Concomitant]
     Indication: OSTEOPOROSIS
     Route: 048

REACTIONS (5)
  - DISSEMINATED INTRAVASCULAR COAGULATION [None]
  - HUMERUS FRACTURE [None]
  - MENINGITIS LISTERIA [None]
  - MENINGITIS STREPTOCOCCAL [None]
  - SEPSIS [None]
